FAERS Safety Report 5339822-1 (Version None)
Quarter: 2007Q2

REPORT INFORMATION
  Report Type: 
  Country: None (occurrence: None)
  Receive Date: 20070531
  Receipt Date: 20070521
  Transmission Date: 20071010
  Serious: Yes (Other)
  Sender: FDA-Public Use
  Company Number: US-JNJFOC-20070206529

PATIENT
  Sex: Female
  Weight: 62.6 kg

DRUGS (9)
  1. FENTANYL TRANSDERMAL SYSTEM [Suspect]
     Indication: PAIN
     Route: 062
  2. DURAGESIC-100 [Suspect]
     Indication: BACK PAIN
     Route: 062
  3. PERCOCET [Concomitant]
     Indication: BACK PAIN
     Route: 048
  4. PAXIL CR [Concomitant]
     Indication: DEPRESSION
     Route: 048
  5. ALLEGRA [Concomitant]
     Indication: MULTIPLE ALLERGIES
     Route: 048
  6. SINGULAIR [Concomitant]
     Indication: ASTHMA
     Route: 048
  7. ADVAIR DISKUS 100/50 [Concomitant]
     Indication: ASTHMA
     Route: 055
  8. ALBUTEROL [Concomitant]
     Indication: ASTHMA
     Route: 065
  9. GLYCOLAX [Concomitant]
     Indication: LAXATIVE SUPPORTIVE CARE
     Route: 065

REACTIONS (6)
  - APPLICATION SITE PAIN [None]
  - APPLICATION SITE VESICLES [None]
  - MIGRAINE [None]
  - SPINAL DISORDER [None]
  - THERAPEUTIC RESPONSE DECREASED [None]
  - WEIGHT DECREASED [None]
